FAERS Safety Report 8911786 (Version 2)
Quarter: 2013Q3

REPORT INFORMATION
  Report Type: Spontaneous
  Country: US (occurrence: US)
  Receive Date: 20121115
  Receipt Date: 20130801
  Transmission Date: 20140515
  Serious: Yes (Death, Hospitalization)
  Sender: FDA-Public Use
  Company Number: US-GLAXOSMITHKLINE-A0862086A

PATIENT
  Age: 84 Year
  Sex: Female

DRUGS (1)
  1. AVANDIA [Suspect]
     Indication: TYPE 2 DIABETES MELLITUS
     Route: 048
     Dates: start: 2002, end: 2006

REACTIONS (4)
  - Myocardial infarction [Unknown]
  - Cerebrovascular accident [Unknown]
  - Cardiac failure congestive [Unknown]
  - Respiratory failure [Fatal]
